FAERS Safety Report 25945199 (Version 1)
Quarter: 2025Q4

REPORT INFORMATION
  Report Type: Spontaneous
  Country: EU (occurrence: EU)
  Receive Date: 20251021
  Receipt Date: 20251021
  Transmission Date: 20260117
  Serious: Yes (Other)
  Sender: NOVARTIS
  Company Number: EU-002147023-NVSC2025GR162220

PATIENT
  Age: 61 Year
  Sex: Female

DRUGS (9)
  1. RIBOCICLIB [Suspect]
     Active Substance: RIBOCICLIB
     Indication: Breast cancer metastatic
     Dosage: UNK
     Route: 065
  2. RIBOCICLIB [Suspect]
     Active Substance: RIBOCICLIB
     Indication: Hormone receptor positive breast cancer
  3. RIBOCICLIB [Suspect]
     Active Substance: RIBOCICLIB
     Indication: Invasive ductal breast carcinoma
  4. RIBOCICLIB [Suspect]
     Active Substance: RIBOCICLIB
     Indication: Metastases to lymph nodes
  5. FULVESTRANT [Concomitant]
     Active Substance: FULVESTRANT
     Indication: Breast cancer metastatic
     Dosage: UNK
     Route: 065
  6. FULVESTRANT [Concomitant]
     Active Substance: FULVESTRANT
     Indication: Metastases to lung
  7. FULVESTRANT [Concomitant]
     Active Substance: FULVESTRANT
     Indication: Metastases to lymph nodes
  8. FULVESTRANT [Concomitant]
     Active Substance: FULVESTRANT
     Indication: Hormone receptor positive breast cancer
  9. FULVESTRANT [Concomitant]
     Active Substance: FULVESTRANT
     Indication: Invasive ductal breast carcinoma

REACTIONS (1)
  - Transient ischaemic attack [Recovered/Resolved]
